FAERS Safety Report 16229524 (Version 4)
Quarter: 2019Q3

REPORT INFORMATION
  Report Type: Report from Study
  Country: FR (occurrence: FR)
  Receive Date: 20190423
  Receipt Date: 20190801
  Transmission Date: 20191004
  Serious: Yes (Death, Hospitalization, Other)
  Sender: FDA-Public Use
  Company Number: FR-SEATTLE GENETICS-2017SGN02673

PATIENT
  Age: 65 Year
  Sex: Male
  Weight: 73 kg

DRUGS (2)
  1. BRENTUXIMAB VEDOTIN-MPI [Suspect]
     Active Substance: BRENTUXIMAB VEDOTIN
     Indication: HODGKIN^S DISEASE
     Dosage: 130 MG, UNK
     Route: 042
     Dates: start: 20170928, end: 201802
  2. BENDAMUSTINE [Suspect]
     Active Substance: BENDAMUSTINE
     Indication: HODGKIN^S DISEASE
     Dosage: 167.5 MG, UNK
     Route: 042
     Dates: start: 20170928

REACTIONS (17)
  - Anaemia [Recovered/Resolved]
  - Rash [Not Recovered/Not Resolved]
  - Off label use [Unknown]
  - Infection [Recovered/Resolved]
  - Malnutrition [Recovered/Resolved]
  - Chills [Recovered/Resolved]
  - Hodgkin^s disease [Fatal]
  - Steroid diabetes [Recovered/Resolved]
  - Gouty arthritis [Recovered/Resolved]
  - Weight decreased [Not Recovered/Not Resolved]
  - Urticaria [Recovered/Resolved]
  - Duodenal ulcer haemorrhage [Recovered/Resolved]
  - Asthenia [Recovered/Resolved]
  - Pyrexia [Recovered/Resolved]
  - Fatigue [Not Recovered/Not Resolved]
  - Decreased appetite [Not Recovered/Not Resolved]
  - Oral candidiasis [Not Recovered/Not Resolved]

NARRATIVE: CASE EVENT DATE: 20170928
